FAERS Safety Report 5061316-1 (Version None)
Quarter: 2006Q3

REPORT INFORMATION
  Report Type: 
  Country: None (occurrence: None)
  Receive Date: 20060719
  Receipt Date: 20060719
  Transmission Date: 20061208
  Serious: Yes (Hospitalization)
  Sender: FDA-Public Use
  Company Number: None

PATIENT
  Age: 65 Year
  Sex: Male

DRUGS (8)
  1. DILTIAZEM [Suspect]
     Indication: HYPERTENSION
     Dosage: 180MG QD
     Dates: start: 20060518
  2. WARFARIN SODIUM [Concomitant]
  3. MS CONTIN [Concomitant]
  4. FOSINOPRIL SODIUM [Concomitant]
  5. METHOTREXATE [Concomitant]
  6. PREDNISONE TAB [Concomitant]
  7. TERAZOSIN HCL [Concomitant]
  8. CYCLOBENZAPRINE HCL [Concomitant]

REACTIONS (1)
  - BRADYCARDIA [None]
